FAERS Safety Report 9343992 (Version 1)
Quarter: 2013Q2

REPORT INFORMATION
  Report Type: Spontaneous
  Country: GB (occurrence: None)
  Receive Date: 20130610
  Receipt Date: 20130610
  Transmission Date: 20140414
  Serious: Yes (Other)
  Sender: FDA-Public Use
  Company Number: THQ2013A04254

PATIENT
  Age: 79 Year
  Sex: Female

DRUGS (15)
  1. LANSOPRAZOLE [Suspect]
     Dosage: 1 IN 1 D
     Route: 048
     Dates: start: 201209, end: 20130410
  2. CLOPIDOGREL [Concomitant]
  3. SALBUTAMOL [Concomitant]
  4. LISINOPRIL [Concomitant]
  5. BENDROFLUMETHIAZIDE [Concomitant]
  6. EZETIMIBE [Concomitant]
  7. TIOTROPIUM [Concomitant]
  8. CARBOCISTEINE [Concomitant]
  9. FERROUS SULPHATE (FERROUS SULFATE) [Concomitant]
  10. SALMETEROL XINAFOATE/FLUTICASONE PROPIONATE (FLUTICASONE PROPIONATE, SALMETEROL XINAFOATE) [Concomitant]
  11. CO-CODAMOL (CODEINE PHOSPHATE, PARACETAMOL) [Concomitant]
  12. GLYCERYL TRINITRATE [Concomitant]
  13. CITALOPRAM [Concomitant]
  14. ADIZEM-XL (DILTIAZEM HYDROCHLORIDE) [Concomitant]
  15. MACROGOL [Concomitant]

REACTIONS (2)
  - Cutaneous lupus erythematosus [None]
  - Rash generalised [None]
